FAERS Safety Report 11953484 (Version 2)
Quarter: 2016Q1

REPORT INFORMATION
  Report Type: Report from Study
  Country: JP (occurrence: JP)
  Receive Date: 20160126
  Receipt Date: 20160216
  Transmission Date: 20160526
  Serious: Yes (Death)
  Sender: FDA-Public Use
  Company Number: JP-JNJFOC-20160120083

PATIENT
  Age: 51 Year
  Sex: Female
  Weight: 41 kg

DRUGS (1)
  1. YONDELIS [Suspect]
     Active Substance: TRABECTEDIN
     Indication: LEIOMYOSARCOMA
     Dosage: 24 HOUR INFUSION
     Route: 042
     Dates: start: 20160114

REACTIONS (1)
  - Leiomyosarcoma [Fatal]

NARRATIVE: CASE EVENT DATE: 201601
